FAERS Safety Report 6955807-3 (Version None)
Quarter: 2010Q3

REPORT INFORMATION
  Report Type: 
  Country: None (occurrence: None)
  Receive Date: 20100830
  Receipt Date: 20100819
  Transmission Date: 20110219
  Serious: Yes (Hospitalization)
  Sender: FDA-Public Use
  Company Number: FI-ROCHE-722022

PATIENT
  Sex: Female

DRUGS (28)
  1. BEVACIZUMAB [Suspect]
     Dosage: TDD: 1170 (UNITS NOT PROVIDED); BIWEEKLY
     Route: 042
     Dates: start: 20090924, end: 20100617
  2. DOCETAXEL [Suspect]
     Route: 065
  3. LYRICA [Concomitant]
     Dates: start: 20090925
  4. LEVOFLOXACIN [Concomitant]
     Dates: start: 20091022, end: 20091026
  5. LEVOFLOXACIN [Concomitant]
     Dates: start: 20091105, end: 20091109
  6. LEVOFLOXACIN [Concomitant]
     Dates: start: 20100524, end: 20100527
  7. LEVOFLOXACIN [Concomitant]
     Dates: start: 20100601, end: 20100604
  8. LEVOFLOXACIN [Concomitant]
     Dates: start: 20100607, end: 20100614
  9. DUACT [Concomitant]
     Dates: start: 20091201, end: 20091213
  10. PREDNISOLONE [Concomitant]
     Dates: start: 20091231, end: 20100107
  11. PREDNISOLONE [Concomitant]
     Dates: start: 20100108, end: 20100111
  12. PREDNISOLONE [Concomitant]
     Dates: start: 20100113, end: 20100127
  13. PREDNISOLONE [Concomitant]
     Dates: start: 20100128, end: 20100209
  14. PREDNISOLONE [Concomitant]
     Dates: start: 20100210, end: 20100217
  15. PREDNISOLONE [Concomitant]
     Dates: start: 20100218, end: 20100222
  16. ATACAND [Concomitant]
     Dates: start: 20100302, end: 20100524
  17. PANACOD [Concomitant]
     Dates: start: 20100504
  18. PANACOD [Concomitant]
     Dosage: PANACOD 500/30 MG
     Dates: start: 20100524, end: 20100527
  19. CALCICHEW [Concomitant]
     Dates: start: 20100504
  20. CEFTRIAXON [Concomitant]
     Dosage: DRUG REPORTED AS CEFTRIAXON FRESENIUS KABI
     Dates: start: 20100524, end: 20100527
  21. CEFTRIAXON [Concomitant]
     Dates: start: 20100601, end: 20100604
  22. DURAGESIC-100 [Concomitant]
     Dosage: DRUG: DUROGESIC 25 MIKROG/H DEPOTLAAST
     Dates: start: 20100524
  23. ATACAND HCT [Concomitant]
     Dosage: ATACAND PLUS 15/16.5 MG
     Dates: start: 20100524
  24. ZOPINOX [Concomitant]
     Dates: start: 20100524
  25. CLAVURION [Concomitant]
     Dates: start: 20100527, end: 20100601
  26. DIAPAM [Concomitant]
     Dates: start: 20100601, end: 20100604
  27. PARA-TABS [Concomitant]
     Dates: start: 20100602
  28. NORFLEX [Concomitant]
     Dates: start: 20100604

REACTIONS (2)
  - C-REACTIVE PROTEIN INCREASED [None]
  - INFECTION [None]
